FAERS Safety Report 8143506-4 (Version None)
Quarter: 2012Q1

REPORT INFORMATION
  Report Type: 
  Country: None (occurrence: None)
  Receive Date: 20120217
  Receipt Date: 20120210
  Transmission Date: 20120608
  Serious: Yes (Life-Threatening, Hospitalization)
  Sender: FDA-Public Use
  Company Number: FR-BRISTOL-MYERS SQUIBB COMPANY-16396079

PATIENT
  Age: 21 Year
  Sex: Female

DRUGS (3)
  1. POTASSIUM CHLORIDE [Concomitant]
     Dosage: CAPS
  2. PHOSPHONEUROS [Concomitant]
  3. ABILIFY [Suspect]
     Dosage: 1DF: HALF TAB 2011-23DEC2011 27-31DEC2011
     Route: 048
     Dates: start: 20110101

REACTIONS (5)
  - HYPOTHERMIA [None]
  - GRAND MAL CONVULSION [None]
  - ASTHENIA [None]
  - RHABDOMYOLYSIS [None]
  - HYPOGLYCAEMIC COMA [None]
